FAERS Safety Report 9760056 (Version 3)
Quarter: 2013Q4

REPORT INFORMATION
  Report Type: Spontaneous
  Country: BR (occurrence: BR)
  Receive Date: 20131216
  Receipt Date: 20131230
  Transmission Date: 20140711
  Serious: Yes (Other)
  Sender: FDA-Public Use
  Company Number: BR-JNJFOC-20131207932

PATIENT
  Age: 42 Year
  Sex: Female
  Weight: 94.8 kg

DRUGS (6)
  1. REMICADE [Suspect]
     Indication: CROHN^S DISEASE
     Route: 042
     Dates: start: 20130816
  2. REMICADE [Suspect]
     Indication: CROHN^S DISEASE
     Route: 042
     Dates: start: 20070612
  3. HYDROCORTISONE [Concomitant]
     Indication: PREMEDICATION
     Route: 042
  4. DIPHENHYDRAMINE [Concomitant]
     Indication: PREMEDICATION
     Route: 042
  5. DIPYRONE [Concomitant]
     Indication: PREMEDICATION
     Route: 042
  6. NORMAL SALINE SOLUTION [Concomitant]
     Indication: UNEVALUABLE EVENT
     Route: 065

REACTIONS (8)
  - Tachycardia [Recovered/Resolved]
  - Infusion related reaction [Unknown]
  - Throat tightness [Recovered/Resolved]
  - Hyperaemia [Recovered/Resolved]
  - Chest discomfort [Recovered/Resolved]
  - Hypertension [Recovered/Resolved]
  - Body temperature increased [Unknown]
  - Adverse event [Unknown]
